FAERS Safety Report 4331259-7 (Version None)
Quarter: 2004Q1

REPORT INFORMATION
  Report Type: 
  Country: None (occurrence: None)
  Receive Date: 20040331
  Receipt Date: 20040315
  Transmission Date: 20041129
  Serious: Yes (Other)
  Sender: FDA-Public Use
  Company Number: 200403575

PATIENT
  Age: 49 Year
  Sex: Female
  Weight: 70 kg

DRUGS (3)
  1. TYLENOL [Suspect]
     Indication: PYREXIA
     Dosage: 35 DROPS QID PO
     Route: 048
  2. ACETAMINOPHEN AND CODEINE PHOSPHATE [Concomitant]
  3. CAPTOPRIL [Concomitant]

REACTIONS (4)
  - HALLUCINATION [None]
  - POLYURIA [None]
  - STUPOR [None]
  - URINARY INCONTINENCE [None]
